FAERS Safety Report 7039329-X (Version None)
Quarter: 2010Q4

REPORT INFORMATION
  Report Type: 
  Country: None (occurrence: None)
  Receive Date: 20101012
  Receipt Date: 20101004
  Transmission Date: 20110411
  Serious: Yes (Other)
  Sender: FDA-Public Use
  Company Number: AU-ABBOTT-10P-008-0676370-00

PATIENT
  Age: 62 Year
  Sex: Male

DRUGS (2)
  1. HUMIRA [Suspect]
     Indication: PSORIASIS
     Dates: start: 20100907
  2. PENICILLIN [Suspect]
     Indication: ANTIBIOTIC PROPHYLAXIS

REACTIONS (2)
  - ANAPHYLACTIC SHOCK [None]
  - SKIN LESION [None]
